FAERS Safety Report 11418707 (Version 2)
Quarter: 2015Q3

REPORT INFORMATION
  Report Type: Report from Study
  Country: FR (occurrence: FR)
  Receive Date: 20150826
  Receipt Date: 20150921
  Transmission Date: 20151125
  Serious: Yes (Hospitalization)
  Sender: FDA-Public Use
  Company Number: FR-ROCHE-1621914

PATIENT
  Age: 63 Year
  Sex: Female

DRUGS (2)
  1. VEMURAFENIB [Suspect]
     Active Substance: VEMURAFENIB
     Indication: MALIGNANT MELANOMA
     Route: 048
     Dates: start: 20150307, end: 20150618
  2. COBIMETINIB [Suspect]
     Active Substance: COBIMETINIB
     Indication: MALIGNANT MELANOMA
     Route: 048
     Dates: start: 20150316, end: 20150618

REACTIONS (5)
  - Nausea [Unknown]
  - Anaemia [Unknown]
  - Lymphopenia [Unknown]
  - Diarrhoea [Unknown]
  - Macular oedema [Unknown]

NARRATIVE: CASE EVENT DATE: 20150603
